FAERS Safety Report 21433494 (Version 1)
Quarter: 2022Q4

REPORT INFORMATION
  Report Type: Spontaneous
  Country: BE (occurrence: BE)
  Receive Date: 20221010
  Receipt Date: 20221010
  Transmission Date: 20230113
  Serious: Yes (Death)
  Sender: FDA-Public Use
  Company Number: BE-BEH-2022150426

PATIENT
  Age: 28 Year

DRUGS (1)
  1. RIASTAP [Suspect]
     Active Substance: FIBRINOGEN HUMAN
     Indication: Hypofibrinogenaemia
     Dosage: 16 DOSAGE FORM (VIALS)
     Route: 065

REACTIONS (5)
  - Death [Fatal]
  - No adverse event [Unknown]
  - Insurance issue [Unknown]
  - No adverse event [Unknown]
  - Off label use [Unknown]
